FAERS Safety Report 26112071 (Version 1)
Quarter: 2025Q4

REPORT INFORMATION
  Report Type: Spontaneous
  Country: US (occurrence: US)
  Receive Date: 20251202
  Receipt Date: 20251202
  Transmission Date: 20260117
  Serious: Yes (Other)
  Sender: CHEPLAPHARM
  Company Number: US-CHEPLA-2025013495

PATIENT
  Age: 38 Year
  Sex: Female

DRUGS (1)
  1. GANCICLOVIR [Suspect]
     Active Substance: GANCICLOVIR
     Indication: Cytomegalovirus colitis
     Route: 042

REACTIONS (13)
  - Septic shock [Unknown]
  - Multiple organ dysfunction syndrome [Unknown]
  - Disseminated intravascular coagulation [Unknown]
  - Pancytopenia [Unknown]
  - Metabolic encephalopathy [Unknown]
  - Emotional distress [Unknown]
  - Condition aggravated [Unknown]
  - Depressive symptom [Unknown]
  - Treatment noncompliance [Unknown]
  - Abdominal pain [Unknown]
  - Asthenia [Unknown]
  - Hepatic function abnormal [Unknown]
  - Haemodynamic instability [Unknown]
